FAERS Safety Report 10573002 (Version 1)
Quarter: 2014Q4

REPORT INFORMATION
  Report Type: Spontaneous
  Country: AT (occurrence: None)
  Receive Date: 20141106
  Receipt Date: 20141106
  Transmission Date: 20150529
  Serious: Yes (Hospitalization)
  Sender: FDA-Public Use
  Company Number: IMP_08023_2014

PATIENT
  Age: 15 Year
  Sex: Female

DRUGS (1)
  1. TETRACYCLINE (TETRACYCLINE- MINOCYCLINE) [Suspect]
     Active Substance: MINOCYCLINE HYDROCHLORIDE
     Indication: FOLLICULITIS

REACTIONS (6)
  - Meningeal disorder [None]
  - Pyrexia [None]
  - Headache [None]
  - Vomiting [None]
  - Cytotoxic oedema [None]
  - Vertigo [None]
